FAERS Safety Report 12302550 (Version 1)
Quarter: 2016Q2

REPORT INFORMATION
  Report Type: Spontaneous
  Country: US (occurrence: US)
  Receive Date: 20160425
  Receipt Date: 20160425
  Transmission Date: 20160815
  Serious: No
  Sender: FDA-Public Use
  Company Number: US-SA-2015SA096371

PATIENT
  Sex: Male

DRUGS (2)
  1. ACCUPRIL [Concomitant]
     Active Substance: QUINAPRIL HYDROCHLORIDE
     Indication: HYPERTENSION
  2. ENOXAPARIN SODIUM - WINTHROP [Suspect]
     Active Substance: ENOXAPARIN SODIUM
     Indication: LIGAMENT DISORDER
     Route: 065
     Dates: start: 20150506, end: 20150603

REACTIONS (2)
  - Skin discolouration [Unknown]
  - Vein disorder [Unknown]
